FAERS Safety Report 4339214-8 (Version None)
Quarter: 2004Q2

REPORT INFORMATION
  Report Type: 
  Country: None (occurrence: None)
  Receive Date: 20040412
  Receipt Date: 20040402
  Transmission Date: 20050107
  Serious: Yes (Other)
  Sender: FDA-Public Use
  Company Number: US-JNJFOC-20040401010

PATIENT
  Age: 71 Year
  Sex: Male
  Weight: 100 kg

DRUGS (6)
  1. HALDOL [Suspect]
     Indication: AGITATION
     Dosage: 25 MG, 1 IN 4 HOUR
  2. VANCOMYCIN [Concomitant]
  3. ALBUTEROL [Concomitant]
  4. ATROVENT [Concomitant]
  5. HYDROCORTISONE [Concomitant]
  6. FLONASE [Concomitant]

REACTIONS (2)
  - BLOOD CREATININE ABNORMAL [None]
  - LACTIC ACIDOSIS [None]
